FAERS Safety Report 9693923 (Version 3)
Quarter: 2013Q4

REPORT INFORMATION
  Report Type: Report from Study
  Country: US (occurrence: US)
  Receive Date: 20131118
  Receipt Date: 20131210
  Transmission Date: 20140711
  Serious: Yes (Hospitalization, Other)
  Sender: FDA-Public Use
  Company Number: US-PURDUE-USA-2013-0106364

PATIENT
  Age: 65 Year
  Sex: Female
  Weight: 76.19 kg

DRUGS (4)
  1. OXY CR TAB [Suspect]
     Indication: SPINAL OSTEOARTHRITIS
     Dosage: 30 MG, Q12H
     Route: 048
     Dates: start: 20130912
  2. OXY CR TAB [Suspect]
     Indication: OSTEOARTHRITIS
     Dosage: UNK
     Dates: start: 201110
  3. OXY CR TAB [Suspect]
     Indication: FIBROMYALGIA
  4. BENZODIAZEPINE DERIVATIVES [Suspect]
     Indication: PRODUCT USED FOR UNKNOWN INDICATION
     Route: 065

REACTIONS (5)
  - Overdose [Unknown]
  - Joint destruction [Unknown]
  - Fall [Not Recovered/Not Resolved]
  - Pain [Not Recovered/Not Resolved]
  - Osteomyelitis [Unknown]
